FAERS Safety Report 9128435 (Version 1)
Quarter: 2013Q1

REPORT INFORMATION
  Report Type: Spontaneous
  Country: US (occurrence: US)
  Receive Date: 20130228
  Receipt Date: 20130228
  Transmission Date: 20140127
  Serious: No
  Sender: FDA-Public Use
  Company Number: US-GLAXOSMITHKLINE-A0986384A

PATIENT
  Sex: Female

DRUGS (9)
  1. SUMATRIPTAN [Suspect]
     Indication: MIGRAINE
     Dosage: 6MG AS REQUIRED
     Route: 058
     Dates: start: 200811
  2. SUMATRIPTAN [Suspect]
     Indication: MIGRAINE
     Route: 058
     Dates: start: 200811
  3. TOPAMAX [Concomitant]
  4. OXYCODONE [Concomitant]
  5. WELLBUTRIN [Concomitant]
  6. LEVOTHYROXINE [Concomitant]
  7. OXYBUTYNIN [Concomitant]
  8. CLONAZEPAM [Concomitant]
  9. TIZANIDINE [Concomitant]

REACTIONS (3)
  - Drug ineffective [Not Recovered/Not Resolved]
  - Nausea [Unknown]
  - Product quality issue [Unknown]
